FAERS Safety Report 21207766 (Version 3)
Quarter: 2022Q4

REPORT INFORMATION
  Report Type: Spontaneous
  Country: US (occurrence: US)
  Receive Date: 20220812
  Receipt Date: 20221117
  Transmission Date: 20230113
  Serious: Yes (Life-Threatening, Disabling)
  Sender: FDA-Public Use
  Company Number: US-AMERICAN REGENT INC-2022000771

PATIENT
  Sex: Female
  Weight: 85.714 kg

DRUGS (7)
  1. FERRIC CARBOXYMALTOSE [Suspect]
     Active Substance: FERRIC CARBOXYMALTOSE
     Indication: Iron deficiency anaemia
     Dosage: 750 MG IN 250 ML NS
     Route: 042
     Dates: start: 201708, end: 201708
  2. FERRIC CARBOXYMALTOSE [Suspect]
     Active Substance: FERRIC CARBOXYMALTOSE
     Dosage: 750 MG IN 250 ML NS
     Route: 042
     Dates: start: 201708, end: 201708
  3. CHOLECALCIFEROL [Concomitant]
     Active Substance: CHOLECALCIFEROL
     Indication: Product used for unknown indication
     Dosage: 1000 UNITS, QD
     Route: 048
  4. FERROUS SULFATE [Concomitant]
     Active Substance: FERROUS SULFATE
     Indication: Iron deficiency anaemia
     Dosage: 325 (65 FE) MG, BID
     Route: 048
  5. NITROGLYCERIN [Concomitant]
     Active Substance: NITROGLYCERIN
     Indication: Product used for unknown indication
     Dosage: 0.3 MILLIGRAM
     Route: 060
  6. PROZAC [Concomitant]
     Active Substance: FLUOXETINE HYDROCHLORIDE
     Indication: Product used for unknown indication
     Dosage: 1 CAPSULE, QD
     Route: 048
  7. VITAMIN B12 [Concomitant]
     Active Substance: CYANOCOBALAMIN
     Indication: Malabsorption
     Dosage: UNK
     Route: 048

REACTIONS (11)
  - Muscle spasms [Not Recovered/Not Resolved]
  - Asthenia [Recovered/Resolved]
  - Pain [Not Recovered/Not Resolved]
  - Hypophosphataemia [Not Recovered/Not Resolved]
  - Chest pain [Recovered/Resolved]
  - Dizziness [Not Recovered/Not Resolved]
  - Dyspnoea [Not Recovered/Not Resolved]
  - Anhedonia [Not Recovered/Not Resolved]
  - Emotional distress [Not Recovered/Not Resolved]
  - Anxiety [Recovered/Resolved]
  - Product quality issue [Unknown]
